FAERS Safety Report 17366550 (Version 2)
Quarter: 2020Q1

REPORT INFORMATION
  Report Type: Spontaneous
  Country: US (occurrence: US)
  Receive Date: 20200204
  Receipt Date: 20200210
  Transmission Date: 20200409
  Serious: No
  Sender: FDA-Public Use
  Company Number: US-PFIZER INC-2020044217

PATIENT
  Age: 83 Year
  Sex: Female

DRUGS (1)
  1. GABAPENTIN. [Suspect]
     Active Substance: GABAPENTIN
     Indication: PAIN
     Dosage: 300 MG, 3X/DAY
     Route: 048

REACTIONS (3)
  - Drug ineffective for unapproved indication [Unknown]
  - Feeling abnormal [Unknown]
  - Off label use [Unknown]
